FAERS Safety Report 10098867 (Version 2)
Quarter: 2014Q4

REPORT INFORMATION
  Report Type: Spontaneous
  Country: US (occurrence: US)
  Receive Date: 20140423
  Receipt Date: 20141124
  Transmission Date: 20150528
  Serious: Yes (Hospitalization, Other)
  Sender: FDA-Public Use
  Company Number: US-BAYER-2014-057999

PATIENT
  Age: 34 Year
  Sex: Female
  Weight: 72.56 kg

DRUGS (1)
  1. YAZ [Suspect]
     Active Substance: DROSPIRENONE\ETHINYL ESTRADIOL
     Dosage: UNK
     Dates: start: 2006, end: 2008

REACTIONS (8)
  - Pulmonary embolism [None]
  - Mental disorder [None]
  - Cerebrovascular accident [None]
  - Pain [None]
  - Injury [None]
  - Deep vein thrombosis [None]
  - Thrombosis [None]
  - Emotional distress [None]

NARRATIVE: CASE EVENT DATE: 2008
